FAERS Safety Report 17002255 (Version 3)
Quarter: 2019Q4

REPORT INFORMATION
  Report Type: Report from Study
  Country: US (occurrence: US)
  Receive Date: 20191106
  Receipt Date: 20191224
  Transmission Date: 20200122
  Serious: No
  Sender: FDA-Public Use
  Company Number: PHHY2019US187336

PATIENT
  Age: 33 Year
  Sex: Female
  Weight: 79.65 kg

DRUGS (5)
  1. LAMPRENE [Suspect]
     Active Substance: CLOFAZIMINE
     Indication: ABDOMINAL INFECTION
  2. LAMPRENE [Suspect]
     Active Substance: CLOFAZIMINE
     Indication: MYCOBACTERIUM ABSCESSUS INFECTION
     Dosage: 100 MG, QD
     Route: 048
     Dates: start: 20190731
  3. AZITHROMYCIN ANHYDROUS. [Suspect]
     Active Substance: AZITHROMYCIN ANHYDROUS
     Indication: MYCOBACTERIUM ABSCESSUS INFECTION
     Dosage: 500 MG, QD
     Route: 048
     Dates: start: 20190731
  4. AMIKACIN. [Suspect]
     Active Substance: AMIKACIN
     Indication: MYCOBACTERIUM ABSCESSUS INFECTION
     Dosage: 1200 MG, (MONDAY, WEDNESDAY AND FRIDAY)
     Route: 042
     Dates: start: 20190731
  5. PRIMAXIN IV [Suspect]
     Active Substance: CILASTATIN SODIUM\IMIPENEM
     Indication: MYCOBACTERIUM ABSCESSUS INFECTION
     Dosage: 500 MG, Q12H  (MONDAY, WEDNESDAY AND FRIDAY)
     Route: 042
     Dates: start: 20190731

REACTIONS (12)
  - Vulvovaginal mycotic infection [Recovered/Resolved]
  - Abdominal mass [Recovered/Resolved]
  - Myalgia [Recovering/Resolving]
  - Purulent discharge [Unknown]
  - Muscle spasms [Recovering/Resolving]
  - Abdominal pain lower [Recovered/Resolved]
  - Pruritus [Not Recovered/Not Resolved]
  - Abscess [Unknown]
  - Vulvovaginal mycotic infection [Recovered/Resolved]
  - Abdominal pain [Not Recovered/Not Resolved]
  - Granuloma [Unknown]
  - Muscle strain [Recovering/Resolving]

NARRATIVE: CASE EVENT DATE: 20190731
